FAERS Safety Report 16673196 (Version 2)
Quarter: 2019Q3

REPORT INFORMATION
  Report Type: Spontaneous
  Country: US (occurrence: US)
  Receive Date: 20190806
  Receipt Date: 20190828
  Transmission Date: 20191004
  Serious: No
  Sender: FDA-Public Use
  Company Number: US-PFIZER INC-2019331204

PATIENT
  Age: 70 Year
  Sex: Male
  Weight: 109.77 kg

DRUGS (1)
  1. NICOTROL [Suspect]
     Active Substance: NICOTINE
     Indication: CHRONIC OBSTRUCTIVE PULMONARY DISEASE
     Dosage: 10MG CAPSULES WITH 4MG DELIVERY AND SUCK THEM DRY AS NEEDED
     Route: 055
     Dates: start: 2018

REACTIONS (2)
  - Dyspnoea [Unknown]
  - Cardiac disorder [Unknown]
